FAERS Safety Report 15276122 (Version 6)
Quarter: 2019Q1

REPORT INFORMATION
  Report Type: Spontaneous
  Country: DE (occurrence: DE)
  Receive Date: 20180814
  Receipt Date: 20190114
  Transmission Date: 20190417
  Serious: Yes (Other)
  Sender: FDA-Public Use
  Company Number: PHHY2018DE068254

PATIENT
  Age: 45 Year
  Sex: Female

DRUGS (13)
  1. ESTRADIOL. [Suspect]
     Active Substance: ESTRADIOL
     Dosage: UNKNOWN, QD, LESS THAN HALF A PUFF DAILY (1 IN 1 D)
     Route: 062
     Dates: start: 2018
  2. ESTRADIOL. [Suspect]
     Active Substance: ESTRADIOL
     Indication: HORMONE REPLACEMENT THERAPY
     Dosage: 1 DF, QD (1 PUFF DAILY (UNKNOWN, 1 D)
     Route: 062
     Dates: start: 201503, end: 201503
  3. LINOLADIOL (ESTRADIOL/ LINOLEIC ACID) [Suspect]
     Active Substance: ESTRADIOL\LINOLEIC ACID
     Indication: LICHEN SCLEROSUS
     Dosage: UNK
     Route: 061
  4. EUTHYROX [Concomitant]
     Active Substance: LEVOTHYROXINE SODIUM
     Indication: AUTOIMMUNE THYROIDITIS
     Dosage: 1 DF, QD (ON 3 DAYS 100 ?G, ON 4 DAYS 112 ?G )
     Route: 048
  5. MIRTAZAPINE. [Concomitant]
     Active Substance: MIRTAZAPINE
     Indication: SLEEP DISORDER
     Dosage: 15 MG, QD (DECLINING DOSE, TAPERED OFF (UNKNOWN, 1 IN 1 D)
     Route: 048
     Dates: start: 2013, end: 201805
  6. LINOLADIOL-H N [Suspect]
     Active Substance: ESTRADIOL\PREDNISOLONE
     Indication: LICHEN SCLEROSUS
     Dosage: UNK
     Route: 061
  7. EUTHYROX [Concomitant]
     Active Substance: LEVOTHYROXINE SODIUM
     Dosage: ON 3 DAYS 100 MICROGRAM, ON 4 DAYS 112 MICROGRAM (UNKNOWN, 1 IN 1 D)
     Route: 048
  8. ESTRADIOL. [Suspect]
     Active Substance: ESTRADIOL
     Dosage: UNKNOWN, REDUCED TO 1/2 PUFF AND LESS IN 2018
     Route: 062
     Dates: start: 2018
  9. DUPHASTON [Concomitant]
     Active Substance: DYDROGESTERONE
     Indication: PREVENTION OF ENDOMETRIAL HYPERPLASIA
     Dosage: UNK
     Route: 048
  10. DUPHASTON [Concomitant]
     Active Substance: DYDROGESTERONE
     Dosage: 10 MG, UNK
     Route: 048
  11. PROGESTERONE. [Suspect]
     Active Substance: PROGESTERONE
     Indication: PREVENTION OF ENDOMETRIAL HYPERPLASIA
     Dosage: 1 DF, QD
     Route: 067
     Dates: start: 201505, end: 201512
  12. VITAMIN B [Concomitant]
     Active Substance: VITAMIN B
     Indication: PRODUCT USED FOR UNKNOWN INDICATION
     Dosage: UNK
     Route: 065
  13. VITAMIN D [Concomitant]
     Active Substance: CHOLECALCIFEROL
     Indication: PRODUCT USED FOR UNKNOWN INDICATION
     Dosage: UNK
     Route: 065

REACTIONS (9)
  - Lichen sclerosus [Recovered/Resolved]
  - Performance status decreased [Not Recovered/Not Resolved]
  - Breast enlargement [Not Recovered/Not Resolved]
  - Product use issue [Not Recovered/Not Resolved]
  - Oestradiol increased [Recovering/Resolving]
  - Potentiating drug interaction [Recovered/Resolved]
  - Menorrhagia [Recovered/Resolved]
  - Fatigue [Recovered/Resolved]
  - Histamine intolerance [Not Recovered/Not Resolved]

NARRATIVE: CASE EVENT DATE: 2015
